FAERS Safety Report 9419430 (Version 2)
Quarter: 2013Q3

REPORT INFORMATION
  Report Type: Spontaneous
  Country: ZA (occurrence: ZA)
  Receive Date: 20130725
  Receipt Date: 20130904
  Transmission Date: 20140515
  Serious: Yes (Other)
  Sender: FDA-Public Use
  Company Number: ZA-PFIZER INC-2013216508

PATIENT
  Age: 52 Year
  Sex: Male

DRUGS (9)
  1. CHAMPIX [Suspect]
     Indication: SMOKING CESSATION THERAPY
     Dosage: 1 MG, UNK
     Route: 048
     Dates: start: 20130531, end: 20130801
  2. ATACAND PLUS [Concomitant]
     Dosage: 16 MG, 1X/DAY
  3. FEDALOC [Concomitant]
     Dosage: UNK
  4. SIMVASTATIN [Concomitant]
     Dosage: 40 MG, 1X/DAY
  5. ECOTRIN [Concomitant]
     Dosage: 81 MG, 1X/DAY
  6. GLUCOPHAGE FORTE [Concomitant]
     Dosage: 880 MG, 3X/DAY (TDS)
  7. HEXEMAL [Concomitant]
     Dosage: 20 MG, 1X/DAY
  8. SPIRACTIN [Concomitant]
     Dosage: 25 MG, 2X/DAY
  9. ADALAT XL [Concomitant]
     Dosage: 30 UNK, 1X/DAY

REACTIONS (2)
  - Narcolepsy [Recovered/Resolved]
  - Cataplexy [Recovered/Resolved]
